FAERS Safety Report 16335985 (Version 1)
Quarter: 2019Q2

REPORT INFORMATION
  Report Type: Spontaneous
  Country: RO (occurrence: RO)
  Receive Date: 20190521
  Receipt Date: 20190521
  Transmission Date: 20190711
  Serious: Yes (Other)
  Sender: FDA-Public Use
  Company Number: RO-ASTRAZENECA-2019SE73916

PATIENT
  Age: 54 Year
  Sex: Male

DRUGS (9)
  1. HEPARIN [Concomitant]
     Active Substance: HEPARIN SODIUM
     Indication: ACUTE CORONARY SYNDROME
     Dosage: 15000.0IU UNKNOWN
  2. HEPARIN [Concomitant]
     Active Substance: HEPARIN SODIUM
     Indication: ANGINA UNSTABLE
     Dosage: 15000.0IU UNKNOWN
  3. INTEGRILIN [Concomitant]
     Active Substance: EPTIFIBATIDE
     Indication: ACUTE CORONARY SYNDROME
     Dosage: 10 ML
  4. INTEGRILIN [Concomitant]
     Active Substance: EPTIFIBATIDE
     Indication: ANGINA UNSTABLE
     Dosage: 10 ML
  5. ASA [Concomitant]
     Active Substance: ASPIRIN
     Indication: ANGINA UNSTABLE
     Dosage: 300 MG
  6. BRILIQUE [Suspect]
     Active Substance: TICAGRELOR
     Indication: ACUTE CORONARY SYNDROME
     Dosage: 90
     Route: 048
     Dates: start: 20190512
  7. ASA [Concomitant]
     Active Substance: ASPIRIN
     Indication: ACUTE CORONARY SYNDROME
     Dosage: 300 MG
  8. SINTROM [Concomitant]
     Active Substance: ACENOCOUMAROL
     Indication: ANTICOAGULANT THERAPY
  9. BRILIQUE [Suspect]
     Active Substance: TICAGRELOR
     Indication: ANGINA UNSTABLE
     Dosage: 90
     Route: 048
     Dates: start: 20190512

REACTIONS (4)
  - Coronary artery stenosis [Unknown]
  - Vascular stent thrombosis [Unknown]
  - Dyspnoea [Recovered/Resolved]
  - Coronary artery thrombosis [Unknown]

NARRATIVE: CASE EVENT DATE: 20190512
